FAERS Safety Report 25979427 (Version 1)
Quarter: 2025Q4

REPORT INFORMATION
  Report Type: Spontaneous
  Country: IN (occurrence: IN)
  Receive Date: 20251030
  Receipt Date: 20251030
  Transmission Date: 20260118
  Serious: Yes (Other)
  Sender: MACLEODS
  Company Number: IN-MACLEODS PHARMA-MAC2015001731

PATIENT

DRUGS (2)
  1. OLANZAPINE [Suspect]
     Active Substance: OLANZAPINE
     Indication: Schizophrenia
     Route: 065
  2. OLANZAPINE [Suspect]
     Active Substance: OLANZAPINE
     Route: 065

REACTIONS (6)
  - Loss of consciousness [Recovered/Resolved]
  - Skin laceration [Unknown]
  - Contusion [Unknown]
  - Fall [Recovered/Resolved]
  - Orthostatic hypotension [Recovered/Resolved]
  - Dizziness [Recovered/Resolved]
